FAERS Safety Report 6576676-X (Version None)
Quarter: 2010Q1

REPORT INFORMATION
  Report Type: 
  Country: None (occurrence: None)
  Receive Date: 20100210
  Receipt Date: 20100201
  Transmission Date: 20100710
  Serious: No
  Sender: FDA-Public Use
  Company Number: US-ASTRAZENECA-2010SE04456

PATIENT
  Age: 17 Year
  Sex: Female
  Weight: 92.1 kg

DRUGS (7)
  1. SEROQUEL [Suspect]
     Indication: AGITATED DEPRESSION
     Route: 048
  2. SEROQUEL [Suspect]
     Indication: POST-TRAUMATIC STRESS DISORDER
     Route: 048
  3. SEROQUEL [Suspect]
     Route: 048
  4. SEROQUEL [Suspect]
     Route: 048
  5. ZOLOFT [Concomitant]
  6. TRAZODONE HCL [Concomitant]
  7. WELLBUTRIN [Concomitant]

REACTIONS (2)
  - LEUKOPENIA [None]
  - NEUTROPENIA [None]
